FAERS Safety Report 9337231 (Version 1)
Quarter: 2012Q4

REPORT INFORMATION
  Report Type: 
  Country: JP (occurrence: JP)
  Receive Date: 20121223
  Receipt Date: 20121223
  Transmission Date: 20130627
  Serious: Yes (Other)
  Sender: FDA-Public Use
  Company Number: PHHY2012JP114919

PATIENT

DRUGS (4)
  1. DIOVAN [Suspect]
     Dosage: UNK
     Route: 048
  2. DIOVAN [Suspect]
     Dosage: 7 DF (560 mg), a day
     Route: 048
     Dates: start: 20121211
  3. ANTIDIABETICS [Concomitant]
  4. INSULIN [Concomitant]

REACTIONS (1)
  - Overdose [Unknown]
